FAERS Safety Report 9241996 (Version 2)
Quarter: 2013Q4

REPORT INFORMATION
  Report Type: Report from Study
  Country: DE (occurrence: DE)
  Receive Date: 20130419
  Receipt Date: 20131211
  Transmission Date: 20140711
  Serious: Yes (Life-Threatening, Hospitalization, Other)
  Sender: FDA-Public Use
  Company Number: DE-ROCHE-1214951

PATIENT
  Age: 65 Year
  Sex: Male
  Weight: 51 kg

DRUGS (3)
  1. CAPECITABINE [Suspect]
     Indication: COLORECTAL CANCER
     Route: 048
     Dates: start: 20130129, end: 20130324
  2. BEVACIZUMAB [Suspect]
     Indication: COLORECTAL CANCER
     Route: 042
     Dates: start: 20130129, end: 20130311
  3. LEVOFLOXACIN [Concomitant]
     Indication: BRONCHITIS
     Route: 048
     Dates: start: 20130404, end: 20130411

REACTIONS (2)
  - Renal failure [Not Recovered/Not Resolved]
  - Renal failure [Recovered/Resolved with Sequelae]
